FAERS Safety Report 9391564 (Version 2)
Quarter: 2013Q3

REPORT INFORMATION
  Report Type: Spontaneous
  Country: DE (occurrence: DE)
  Receive Date: 20130709
  Receipt Date: 20130925
  Transmission Date: 20140515
  Serious: Yes (Hospitalization, Other)
  Sender: FDA-Public Use
  Company Number: DE-JNJFOC-20130702484

PATIENT
  Age: 94 Year
  Sex: Female
  Weight: 63.95 kg

DRUGS (13)
  1. XARELTO [Suspect]
     Indication: CEREBROVASCULAR ACCIDENT PROPHYLAXIS
     Route: 048
     Dates: start: 201206, end: 201306
  2. XARELTO [Suspect]
     Indication: ATRIAL FIBRILLATION
     Route: 048
     Dates: start: 201206, end: 201306
  3. DOXAZOSIN [Concomitant]
     Route: 065
  4. METOHEXAL SUCC [Concomitant]
     Route: 065
  5. SIMVASTATIN [Concomitant]
     Route: 065
  6. LANTUS [Concomitant]
     Route: 065
  7. JANUVIA [Concomitant]
     Route: 065
  8. NOVAMINSULFON [Concomitant]
     Route: 065
  9. CORDAREX [Concomitant]
     Route: 065
  10. HCT [Concomitant]
     Route: 065
  11. TORASEMID [Concomitant]
     Route: 065
  12. PANTOPRAZOLE [Concomitant]
     Route: 065
  13. MOVICOL [Concomitant]
     Route: 065

REACTIONS (4)
  - Compartment syndrome [Recovering/Resolving]
  - Haematoma [Recovering/Resolving]
  - Peripheral nerve paresis [Unknown]
  - Sensory disturbance [Unknown]
